FAERS Safety Report 7209137-5 (Version None)
Quarter: 2011Q1

REPORT INFORMATION
  Report Type: 
  Country: None (occurrence: None)
  Receive Date: 20110104
  Receipt Date: 20101227
  Transmission Date: 20110831
  Serious: Yes (Other)
  Sender: FDA-Public Use
  Company Number: US-TEVA-227757USA

PATIENT
  Sex: Female

DRUGS (3)
  1. CLARAVIS [Suspect]
     Route: 048
     Dates: start: 20091106, end: 20100110
  2. IRON [Concomitant]
     Indication: ANAEMIA
     Dosage: BID
     Route: 048
     Dates: start: 20100824
  3. CILEST [Concomitant]
     Indication: CONTRACEPTION

REACTIONS (2)
  - UNINTENDED PREGNANCY [None]
  - ANAEMIA [None]
